FAERS Safety Report 10545961 (Version 1)
Quarter: 2014Q4

REPORT INFORMATION
  Report Type: Report from Study
  Country: US (occurrence: US)
  Receive Date: 20141027
  Receipt Date: 20141027
  Transmission Date: 20150529
  Serious: Yes (Hospitalization)
  Sender: FDA-Public Use
  Company Number: US-ROCHE-1476167

PATIENT
  Age: 49 Year
  Sex: Female
  Weight: 65.5 kg

DRUGS (20)
  1. CARVEDILOL. [Concomitant]
     Active Substance: CARVEDILOL
     Route: 048
  2. COLACE CAPS [Concomitant]
     Route: 048
  3. CLARITIN [Concomitant]
     Active Substance: LORATADINE
     Indication: FACE OEDEMA
     Route: 048
  4. NAB-PACLITAXEL [Suspect]
     Active Substance: PACLITAXEL
     Indication: HER-2 POSITIVE BREAST CANCER
     Route: 042
     Dates: start: 20140411, end: 20140808
  5. AMIODARONE [Concomitant]
     Active Substance: AMIODARONE
     Route: 042
  6. CLONIDINE. [Concomitant]
     Active Substance: CLONIDINE
     Route: 048
  7. MEDROL [Concomitant]
     Active Substance: METHYLPREDNISOLONE
     Indication: OEDEMA PERIPHERAL
  8. MEDROL [Concomitant]
     Active Substance: METHYLPREDNISOLONE
  9. AMIODARONE [Concomitant]
     Active Substance: AMIODARONE
     Route: 048
  10. CLARITIN [Concomitant]
     Active Substance: LORATADINE
     Indication: OEDEMA PERIPHERAL
  11. HYDROCHLOROTHIAZIDE. [Concomitant]
     Active Substance: HYDROCHLOROTHIAZIDE
     Indication: OEDEMA PERIPHERAL
  12. PERTUZUMAB [Suspect]
     Active Substance: PERTUZUMAB
     Indication: HER-2 POSITIVE BREAST CANCER
     Dosage: LOADING DOSE AS PER PROTOCOL ON DAY 1 OF CYCLE 1
     Route: 042
     Dates: start: 20140411, end: 20140411
  13. PERTUZUMAB [Suspect]
     Active Substance: PERTUZUMAB
     Route: 042
     Dates: start: 20140502, end: 20140808
  14. TRASTUZUMAB [Suspect]
     Active Substance: TRASTUZUMAB
     Indication: HER-2 POSITIVE BREAST CANCER
     Dosage: LOADING DOSE ON DAY 1 OF CYCLE 1
     Route: 042
     Dates: start: 20140411, end: 20140411
  15. TRASTUZUMAB [Suspect]
     Active Substance: TRASTUZUMAB
     Route: 042
     Dates: start: 20140418, end: 20140808
  16. HYDROCHLOROTHIAZIDE. [Concomitant]
     Active Substance: HYDROCHLOROTHIAZIDE
     Indication: FACE OEDEMA
     Route: 065
  17. BENADRYL [Concomitant]
     Active Substance: DIPHENHYDRAMINE HYDROCHLORIDE
     Indication: FACE OEDEMA
     Route: 065
  18. BENADRYL [Concomitant]
     Active Substance: DIPHENHYDRAMINE HYDROCHLORIDE
     Indication: OEDEMA PERIPHERAL
     Route: 048
  19. MEDROL [Concomitant]
     Active Substance: METHYLPREDNISOLONE
     Indication: FACE OEDEMA
     Route: 048
  20. AMIODARONE [Concomitant]
     Active Substance: AMIODARONE
     Indication: ATRIAL FIBRILLATION
     Route: 040
     Dates: start: 20140918

REACTIONS (2)
  - Ill-defined disorder [Unknown]
  - Supraventricular extrasystoles [Unknown]

NARRATIVE: CASE EVENT DATE: 20140917
